FAERS Safety Report 9171025 (Version 2)
Quarter: 2013Q2

REPORT INFORMATION
  Report Type: Spontaneous
  Country: JP (occurrence: JP)
  Receive Date: 20130319
  Receipt Date: 20130408
  Transmission Date: 20140414
  Serious: Yes (Other)
  Sender: FDA-Public Use
  Company Number: JP-PFIZER INC-2013088618

PATIENT
  Age: 7 Decade
  Sex: Female

DRUGS (2)
  1. LIPITOR [Suspect]
     Dosage: 10 MG DAILY
     Route: 048
     Dates: start: 2005, end: 2005
  2. LIPITOR [Suspect]
     Dosage: 5 MG ONCE DAILY
     Route: 048
     Dates: start: 2005

REACTIONS (1)
  - Muscle atrophy [Unknown]
